FAERS Safety Report 23044027 (Version 1)
Quarter: 2023Q4

REPORT INFORMATION
  Report Type: Spontaneous
  Country: US (occurrence: US)
  Receive Date: 20231009
  Receipt Date: 20231009
  Transmission Date: 20240110
  Serious: No
  Sender: FDA-Public Use
  Company Number: US-HORIZON THERAPEUTICS-HZN-2022-008436

PATIENT

DRUGS (5)
  1. KRYSTEXXA [Suspect]
     Active Substance: PEGLOTICASE
     Indication: Gout
     Dosage: FIRST INFUSION, EVERY 2 WEEKS
     Route: 042
     Dates: start: 20221026
  2. KRYSTEXXA [Suspect]
     Active Substance: PEGLOTICASE
     Indication: Gouty tophus
     Dosage: 2ND INFUSION EVERY 2 WEEKS
     Route: 042
     Dates: start: 2022
  3. KRYSTEXXA [Suspect]
     Active Substance: PEGLOTICASE
     Dosage: 3RD INFUSION EVERY 2 WEEKS
     Route: 042
     Dates: start: 2022
  4. KRYSTEXXA [Suspect]
     Active Substance: PEGLOTICASE
     Dosage: 4TH INFUSION, EVERY 2 WEEKS
     Route: 042
     Dates: start: 2022
  5. METHOTREXATE [Concomitant]
     Active Substance: METHOTREXATE

REACTIONS (8)
  - Pyrexia [Recovered/Resolved]
  - Gouty tophus [Not Recovered/Not Resolved]
  - Tremor [Not Recovered/Not Resolved]
  - Blood pressure decreased [Not Recovered/Not Resolved]
  - Pruritus [Not Recovered/Not Resolved]
  - Urticaria [Not Recovered/Not Resolved]
  - Gout [Recovered/Resolved]
  - Peripheral swelling [Recovering/Resolving]

NARRATIVE: CASE EVENT DATE: 20220101
